FAERS Safety Report 8589951-4 (Version None)
Quarter: 2012Q3

REPORT INFORMATION
  Report Type: 
  Country: None (occurrence: None)
  Receive Date: 20120813
  Receipt Date: 19881021
  Transmission Date: 20120928
  Serious: Yes (Hospitalization)
  Sender: FDA-Public Use
  Company Number: US-ROCHE-1099246

PATIENT
  Sex: Male

DRUGS (2)
  1. ACTIVASE [Suspect]
     Indication: ACUTE MYOCARDIAL INFARCTION
     Dosage: 6 MG BOLUS; 54 MG FOR FIRST HOUR AND 20 MG THE NEXT HOUR AND 5 MG  EVRY HOUR FOR NEXT 4 HOURS FOR TO
     Route: 042
  2. ACTIVASE [Suspect]
     Indication: ARRHYTHMIA

REACTIONS (2)
  - VENTRICULAR EXTRASYSTOLES [None]
  - GALLOP RHYTHM PRESENT [None]
